FAERS Safety Report 21007906 (Version 2)
Quarter: 2022Q3

REPORT INFORMATION
  Report Type: Report from Study
  Country: US (occurrence: US)
  Receive Date: 20220627
  Receipt Date: 20220721
  Transmission Date: 20221026
  Serious: Yes (Death, Other)
  Sender: FDA-Public Use
  Company Number: US-ACADIA PHARMACEUTICALS INC.-ACA-2022-PIM-002121

PATIENT
  Age: 68 Year
  Sex: Male

DRUGS (43)
  1. NUPLAZID [Suspect]
     Active Substance: PIMAVANSERIN TARTRATE
     Indication: Parkinson^s disease
     Dosage: 34 MILLIGRAM, QD
     Route: 048
     Dates: start: 20210113
  2. NUPLAZID [Suspect]
     Active Substance: PIMAVANSERIN TARTRATE
     Dosage: 34 MILLIGRAM, QD
     Route: 048
     Dates: start: 202201, end: 20220607
  3. ACETAMINOPHEN [Concomitant]
     Active Substance: ACETAMINOPHEN
     Indication: Pain
     Dosage: 325 MILLIGRAM, EVERY 4 HRS
     Dates: start: 20220525
  4. BAQSIMI [Concomitant]
     Active Substance: GLUCAGON
     Indication: Hypoglycaemia
     Dosage: 3MG/ACTUATION NASAL SPRAY, 1 SPRAY AS NEEDED
     Dates: start: 20220525
  5. CARBIDOPA\LEVODOPA [Concomitant]
     Active Substance: CARBIDOPA\LEVODOPA
     Indication: Parkinson^s disease
     Dosage: 10-100 MG EVERY 12 HOURS
     Dates: start: 20220525
  6. CARBIDOPA\LEVODOPA [Concomitant]
     Active Substance: CARBIDOPA\LEVODOPA
     Indication: Musculoskeletal stiffness
     Dosage: 25-100 MG TID (1.5 TABLETS)
     Route: 048
     Dates: start: 20220525
  7. CARBIDOPA\LEVODOPA [Concomitant]
     Active Substance: CARBIDOPA\LEVODOPA
     Dosage: 25-100 MG TID (2 TABLETS)
     Route: 048
  8. CARBIDOPA\ENTACAPONE\LEVODOPA [Concomitant]
     Active Substance: CARBIDOPA\ENTACAPONE\LEVODOPA
     Indication: Parkinson^s disease
     Dosage: 50-200-200 MG, 1 TAB 4 TIMES QD
     Route: 048
     Dates: start: 20220525
  9. CEPHALEXIN [Concomitant]
     Active Substance: CEPHALEXIN
     Indication: Urinary tract infection
     Dosage: 500 MILLIGRAM, BID
     Route: 048
     Dates: start: 20220606
  10. DEXTROSE [Concomitant]
     Active Substance: DEXTROSE
     Indication: Hypoglycaemia
     Dosage: 4 GRAM AS NEEDED
     Dates: start: 20220525
  11. DICLOFENAC [Concomitant]
     Active Substance: DICLOFENAC
     Indication: Pain
     Dosage: EVERY 6 HOURS AS NEEDED
     Route: 061
     Dates: start: 20220525
  12. FLUTICASONE PROPIONATE [Concomitant]
     Active Substance: FLUTICASONE PROPIONATE
     Indication: Hypersensitivity
     Dosage: 50 MICROGRAM, BID (2 SPRAYS, BOTH NOSTRILS)
     Route: 045
     Dates: start: 20220525
  13. INSULIN ASPART [Concomitant]
     Active Substance: INSULIN ASPART
     Indication: Diabetes mellitus
     Dosage: 3 ML 100 UNIT/ML SUBCUTANEOUS PEN
     Route: 058
     Dates: start: 20220525
  14. INSULIN GLARGINE [Concomitant]
     Active Substance: INSULIN GLARGINE
     Indication: Diabetes mellitus
     Dosage: 38 UNITS, QD, 3 ML SUBCUTANEOUS PEN
     Route: 058
     Dates: start: 20220525
  15. LISINOPRIL [Concomitant]
     Active Substance: LISINOPRIL
     Indication: Arteriosclerosis
     Dosage: 5 MILLIGRAM
     Dates: start: 20220525
  16. LOPERAMIDE [Concomitant]
     Active Substance: LOPERAMIDE
     Indication: Diarrhoea
     Dosage: 2 MILLIGRAM EVERY 8 HOURS
     Dates: start: 20220525
  17. LORAZEPAM [Concomitant]
     Active Substance: LORAZEPAM
     Indication: Anxiety
     Dosage: 0.5 MILLIGRAM TAB, EVERY 4 HOURS
     Dates: start: 20220525
  18. LORAZEPAM [Concomitant]
     Active Substance: LORAZEPAM
     Indication: Restlessness
  19. MELOXICAM [Concomitant]
     Active Substance: MELOXICAM
     Indication: Rhabdomyolysis
     Dosage: 15 MILLIGRAM, QD
     Dates: start: 20220525
  20. METFORMIN [Concomitant]
     Active Substance: METFORMIN HYDROCHLORIDE
     Indication: Diabetes mellitus
     Dosage: 1000 MILLIGRAM, BID
     Route: 048
  21. METFORMIN [Concomitant]
     Active Substance: METFORMIN HYDROCHLORIDE
     Dosage: 500 MILLIGRAM, BID
     Dates: start: 20220525
  22. MORPHINE [Concomitant]
     Active Substance: MORPHINE
     Indication: Pain
     Dosage: 100 MG/5 ML (20 MG/ML), 5 MG EVERY 2 HOURS
     Route: 048
     Dates: start: 20220525
  23. MORPHINE [Concomitant]
     Active Substance: MORPHINE
     Indication: Dyspnoea
     Dosage: 100 MG/5 ML (20 MG/ML), 10 MG EVERY 2 HOURS
     Route: 048
     Dates: start: 20220606
  24. POLYETHYLENE GLYCOL 3350 [Concomitant]
     Active Substance: POLYETHYLENE GLYCOL 3350
     Indication: Constipation
     Dosage: 17 GRAM, QD
     Dates: start: 20220525
  25. PYRIDOSTIGMINE BROMIDE [Concomitant]
     Active Substance: PYRIDOSTIGMINE BROMIDE
     Indication: Parkinson^s disease
     Dosage: 60 MG TAB, 0.25 TAB TID
     Dates: start: 20220525
  26. REFRESH TEARS [Concomitant]
     Active Substance: CARBOXYMETHYLCELLULOSE SODIUM
     Indication: Dry eye
     Dosage: 0.5% EYE DROPS, 1 DROP BID
     Route: 047
     Dates: start: 20210113
  27. REFRESH TEARS [Concomitant]
     Active Substance: CARBOXYMETHYLCELLULOSE SODIUM
     Dosage: 0.5% EYE DROPS, 1 DROP TID
     Route: 047
     Dates: start: 20220525
  28. REMEDY PHYTOPLEX PROTECTANT Z GUARD [Concomitant]
     Indication: Wound treatment
     Dosage: 17-57 PERCENT, QD
     Route: 061
     Dates: start: 20220525
  29. SERTRALINE [Concomitant]
     Active Substance: SERTRALINE HYDROCHLORIDE
     Indication: Depression
     Dosage: 50 MG TAB, 1 TAB QD
     Route: 048
     Dates: start: 20210113
  30. SERTRALINE [Concomitant]
     Active Substance: SERTRALINE HYDROCHLORIDE
     Dosage: 50 MG TAB, 1.5 TAB QD
     Dates: start: 20220525
  31. TAMSULOSIN [Concomitant]
     Active Substance: TAMSULOSIN
     Indication: Prostatic disorder
     Dosage: 0.4 MG CAPSULE QD
     Dates: start: 20220525
  32. TRULICITY [Concomitant]
     Active Substance: DULAGLUTIDE
     Indication: Diabetes mellitus
     Dosage: 0.75 MG/0.5 ML SUBCUTANEOOUS PEN INJECTOR
     Route: 058
     Dates: start: 20220525
  33. CLEANSER [Concomitant]
     Indication: Wound treatment
     Dosage: WOUND CLEANSER IRRIGATION SPRAY, 2 SPRAYS QD
     Dates: start: 20220525
  34. ASPIRIN [Concomitant]
     Active Substance: ASPIRIN
     Dosage: 81 MILLIGRAM, QD
     Route: 048
     Dates: start: 20210113
  35. COENZYME Q10 [Concomitant]
     Active Substance: DIETARY SUPPLEMENT\UBIDECARENONE
     Dosage: 100 MILLIGRAM CAPULE, 2 CAPSULES QD
     Route: 048
     Dates: start: 20210113
  36. CRESTOR [Concomitant]
     Active Substance: ROSUVASTATIN CALCIUM
     Dosage: 10 MILLIGRAM, QD (BEDTIME)
     Route: 048
     Dates: start: 20210113
  37. FLONASE ALLERGY RELIEF [Concomitant]
     Active Substance: FLUTICASONE PROPIONATE
     Dosage: 50 MICROGRAM, BID 1 SPRAY EACH NOSTRIL, 2 TIMES DAILY
     Route: 045
     Dates: start: 20210113
  38. HUMALOG HD KWIKPEN [Concomitant]
     Dosage: 100 UNIT/ML (80 UNITS, 2 TIMES DAILY)
     Route: 058
     Dates: start: 20210113
  39. OZEMPIC [Concomitant]
     Active Substance: SEMAGLUTIDE
     Dosage: 1 ML WEEK, SUBCUTANEOUS PEN INJECTOR
     Route: 058
     Dates: start: 20210113
  40. QUETIAPINE [Concomitant]
     Active Substance: QUETIAPINE
     Dosage: 25 MILLIGRAM, 3 TABLETS BID
     Route: 048
     Dates: start: 20210113
  41. VITAMIN C [Concomitant]
     Active Substance: ASCORBIC ACID
     Indication: Vitamin supplementation
     Dosage: 500 MILLIGRAM, QD
     Route: 048
     Dates: start: 20210113
  42. VITAMIN D3 [Concomitant]
     Active Substance: CHOLECALCIFEROL
     Indication: Vitamin supplementation
     Dosage: 100 MICROGRAM, QD
     Route: 048
     Dates: start: 20210113
  43. CARBIDOPA [Concomitant]
     Active Substance: CARBIDOPA
     Dosage: 25 MILLIGRAM, TID
     Route: 048
     Dates: start: 20210113

REACTIONS (2)
  - Parkinson^s disease [Recovered/Resolved]
  - Dementia [Recovered/Resolved]

NARRATIVE: CASE EVENT DATE: 20220525
